FAERS Safety Report 7518940-3 (Version None)
Quarter: 2011Q2

REPORT INFORMATION
  Report Type: 
  Country: None (occurrence: None)
  Receive Date: 20110602
  Receipt Date: 20110527
  Transmission Date: 20111010
  Serious: Yes (Other)
  Sender: FDA-Public Use
  Company Number: CA-PFIZER INC-2011115398

PATIENT
  Age: 18 Month
  Sex: Male

DRUGS (2)
  1. XYNTHA [Suspect]
     Dosage: UNK
     Dates: start: 20100101
  2. XYNTHA [Suspect]
     Dosage: 1000 IU, WEEKLY
     Dates: start: 20110201

REACTIONS (2)
  - FACTOR VIII INHIBITION [None]
  - PYREXIA [None]
